FAERS Safety Report 9431139 (Version 5)
Quarter: 2014Q1

REPORT INFORMATION
  Report Type: Report from Study
  Country: JP (occurrence: JP)
  Receive Date: 20130730
  Receipt Date: 20140213
  Transmission Date: 20141002
  Serious: Yes (Hospitalization)
  Sender: FDA-Public Use
  Company Number: JP-ASTRAZENECA-2013SE56607

PATIENT
  Age: 26859 Day
  Sex: Male

DRUGS (20)
  1. AZD6140 [Suspect]
     Indication: CORONARY ARTERY DISEASE
     Route: 048
     Dates: start: 20130207, end: 20130717
  2. MICARDIS [Concomitant]
     Indication: HYPERTENSION
     Route: 048
     Dates: end: 20130717
  3. MICARDIS [Concomitant]
     Indication: HYPERTENSION
     Route: 048
     Dates: start: 20130901
  4. DIOVAN [Concomitant]
     Indication: HYPERTENSION
     Route: 048
     Dates: end: 20130717
  5. DIOVAN [Concomitant]
     Indication: HYPERTENSION
     Route: 048
     Dates: start: 20130901
  6. NORVASC [Concomitant]
     Indication: HYPERTENSION
     Route: 048
     Dates: end: 20130717
  7. NORVASC [Concomitant]
     Indication: HYPERTENSION
     Route: 048
     Dates: start: 20130901
  8. LANTUS [Concomitant]
     Indication: TYPE 2 DIABETES MELLITUS
     Route: 058
     Dates: end: 20130717
  9. LANTUS [Concomitant]
     Indication: TYPE 2 DIABETES MELLITUS
     Route: 058
     Dates: start: 20130901
  10. TAKEPRON OD [Concomitant]
     Indication: GASTRITIS PROPHYLAXIS
     Route: 048
     Dates: end: 20130218
  11. TAKEPRON OD [Concomitant]
     Indication: GASTRITIS PROPHYLAXIS
     Route: 048
     Dates: start: 20130404, end: 20130717
  12. TAKEPRON OD [Concomitant]
     Indication: GASTRITIS PROPHYLAXIS
     Route: 048
     Dates: start: 20130901
  13. ARTIST [Concomitant]
     Indication: HYPERTENSION
     Route: 048
     Dates: end: 20130717
  14. ARTIST [Concomitant]
     Indication: HYPERTENSION
     Route: 048
     Dates: start: 20130901
  15. LIPITOR [Concomitant]
     Indication: DYSLIPIDAEMIA
     Route: 048
     Dates: end: 20130717
  16. LIPITOR [Concomitant]
     Indication: DYSLIPIDAEMIA
     Route: 048
     Dates: start: 20130901
  17. XALATAN [Concomitant]
     Indication: GLAUCOMA
     Route: 031
     Dates: end: 20130717
  18. XALATAN [Concomitant]
     Indication: GLAUCOMA
     Route: 031
     Dates: start: 20130901
  19. ASA [Concomitant]
     Route: 048
     Dates: end: 20130717
  20. ASA [Concomitant]
     Route: 048
     Dates: start: 20130901

REACTIONS (1)
  - Mechanical ileus [Not Recovered/Not Resolved]
